FAERS Safety Report 6232629-2 (Version None)
Quarter: 2009Q2

REPORT INFORMATION
  Report Type: 
  Country: None (occurrence: None)
  Receive Date: 20090615
  Receipt Date: 20090615
  Transmission Date: 20091009
  Serious: No
  Sender: FDA-Public Use
  Company Number: None

PATIENT
  Age: 37 Year
  Sex: Female
  Weight: 70.3075 kg

DRUGS (1)
  1. DIPRIVAN [Suspect]
     Indication: INDUCTION OF ANAESTHESIA
     Dosage: IV 5/29/09 0715
     Route: 042
     Dates: start: 20090529

REACTIONS (2)
  - INFUSION SITE EXTRAVASATION [None]
  - INFUSION SITE HAEMATOMA [None]
